FAERS Safety Report 8922220 (Version 1)
Quarter: 2012Q4

REPORT INFORMATION
  Report Type: Report from Study
  Country: GB (occurrence: US)
  Receive Date: 20121123
  Receipt Date: 20121123
  Transmission Date: 20130627
  Serious: Yes (Death, Hospitalization)
  Sender: FDA-Public Use
  Company Number: US-SANOFI-AVENTIS-2012SA085824

PATIENT
  Age: 52 Year
  Sex: Male
  Weight: 91.7 kg

DRUGS (12)
  1. DOCETAXEL [Suspect]
     Indication: NON-SMALL CELL LUNG CANCER
     Route: 042
     Dates: start: 20071005
  2. BEVACIZUMAB [Suspect]
     Indication: NON-SMALL CELL LUNG CANCER
     Route: 042
     Dates: start: 20071026
  3. CARBOPLATIN [Suspect]
     Indication: NON-SMALL CELL LUNG CANCER
     Route: 042
     Dates: start: 20071005
  4. DEXAMETHASONE [Concomitant]
     Route: 048
  5. ZOCOR [Concomitant]
  6. PROZAC [Concomitant]
  7. TAMSULOSIN [Concomitant]
  8. MULTIVITAMINS [Concomitant]
  9. POTASSIUM [Concomitant]
  10. BENICAR [Concomitant]
  11. PRILOSEC [Concomitant]
  12. NAPROXEN [Concomitant]

REACTIONS (1)
  - Brain oedema [Fatal]
